FAERS Safety Report 22594897 (Version 1)
Quarter: 2023Q2

REPORT INFORMATION
  Report Type: Spontaneous
  Country: US (occurrence: None)
  Receive Date: 20230612
  Receipt Date: 20230612
  Transmission Date: 20230722
  Serious: Yes (Life-Threatening, Hospitalization)
  Sender: FDA-Public Use
  Company Number: None

PATIENT
  Age: 88 Year
  Sex: Male
  Weight: 66 kg

DRUGS (1)
  1. ISOVUE 370 [Suspect]
     Active Substance: IOPAMIDOL
     Dosage: OTHER FREQUENCY : ONCE;?
     Route: 042
     Dates: start: 20230612, end: 20230612

REACTIONS (5)
  - Seizure [None]
  - Dizziness [None]
  - Agonal respiration [None]
  - Cardiac arrest [None]
  - Rash [None]

NARRATIVE: CASE EVENT DATE: 20230612
